FAERS Safety Report 9061506 (Version 1)
Quarter: 2013Q1

REPORT INFORMATION
  Report Type: Spontaneous
  Country: US (occurrence: None)
  Receive Date: 20130211
  Receipt Date: 20130211
  Transmission Date: 20140127
  Serious: Yes (Hospitalization)
  Sender: FDA-Public Use
  Company Number: None

PATIENT
  Sex: Male
  Weight: 75 kg

DRUGS (2)
  1. ALFA 2 INTERFERON 2B (INTRON-A) [Suspect]
     Dates: end: 20130201
  2. LOPID [Concomitant]

REACTIONS (7)
  - Hepatotoxicity [None]
  - Aspartate aminotransferase increased [None]
  - Alanine aminotransferase increased [None]
  - Anxiety [None]
  - Insomnia [None]
  - Restlessness [None]
  - Depression [None]
